FAERS Safety Report 7829408-9 (Version None)
Quarter: 2011Q4

REPORT INFORMATION
  Report Type: 
  Country: None (occurrence: None)
  Receive Date: 20111020
  Receipt Date: 20111007
  Transmission Date: 20120403
  Serious: Yes (Other)
  Sender: FDA-Public Use
  Company Number: US-BAYER-2011-095073

PATIENT
  Age: 86 Year
  Sex: Female
  Weight: 57 kg

DRUGS (4)
  1. CALCIUM CARBONATE [Concomitant]
  2. METOPROLOL TARTRATE [Concomitant]
  3. ALEVE (CAPLET) [Suspect]
     Indication: PAIN
     Dosage: 440 MG, QD, BOTTLE COUNT 50S
     Route: 048
     Dates: start: 20110904, end: 20110929
  4. ASPIRIN [Concomitant]
     Indication: THROMBOSIS PROPHYLAXIS

REACTIONS (10)
  - HEART RATE IRREGULAR [None]
  - MICTURITION FREQUENCY DECREASED [None]
  - HEADACHE [None]
  - EAR DISCOMFORT [None]
  - VISION BLURRED [None]
  - SOMNOLENCE [None]
  - RASH MACULAR [None]
  - DEAFNESS [None]
  - PHARYNGEAL OEDEMA [None]
  - BLOOD PRESSURE DECREASED [None]
